FAERS Safety Report 9721420 (Version 1)
Quarter: 2013Q4

REPORT INFORMATION
  Report Type: Spontaneous
  Country: FR (occurrence: FR)
  Receive Date: 20131129
  Receipt Date: 20131129
  Transmission Date: 20140711
  Serious: Yes (Hospitalization, Other)
  Sender: FDA-Public Use
  Company Number: ALCN2013FR005908

PATIENT
  Age: 16 Year
  Sex: Female
  Weight: 52 kg

DRUGS (2)
  1. CYCLOPENTOLATE HCL [Suspect]
     Indication: OPHTHALMOLOGICAL EXAMINATION
     Dosage: 3 DRP, ONCE/SINGLE
     Route: 047
     Dates: start: 20131010, end: 20131010
  2. ZITHROMAX [Concomitant]
     Indication: CAMPYLOBACTER GASTROENTERITIS

REACTIONS (1)
  - Delirium [Recovering/Resolving]
